FAERS Safety Report 7142074-3 (Version None)
Quarter: 2010Q4

REPORT INFORMATION
  Report Type: 
  Country: None (occurrence: None)
  Receive Date: 20101207
  Receipt Date: 20101201
  Transmission Date: 20110411
  Serious: Yes (Other)
  Sender: FDA-Public Use
  Company Number: B0687797A

PATIENT
  Age: 53 Year
  Sex: Female

DRUGS (1)
  1. AUGMENTIN [Suspect]
     Route: 065
     Dates: start: 20101029, end: 20101104

REACTIONS (2)
  - JAUNDICE CHOLESTATIC [None]
  - PRURITUS [None]
